FAERS Safety Report 12619066 (Version 7)
Quarter: 2017Q1

REPORT INFORMATION
  Report Type: Spontaneous
  Country: JP (occurrence: JP)
  Receive Date: 20160803
  Receipt Date: 20170209
  Transmission Date: 20170428
  Serious: Yes (Hospitalization, Other)
  Sender: FDA-Public Use
  Company Number: JP-JNJFOC-20160800391

PATIENT
  Age: 44 Year
  Sex: Male
  Weight: 52 kg

DRUGS (25)
  1. TRAMAL [Suspect]
     Active Substance: TRAMADOL
     Indication: WOUND COMPLICATION
     Route: 048
     Dates: start: 20150127, end: 20150319
  2. TRAMAL [Suspect]
     Active Substance: TRAMADOL
     Indication: WOUND COMPLICATION
     Route: 048
     Dates: start: 20150122, end: 20150126
  3. TRAMCET [Suspect]
     Active Substance: ACETAMINOPHEN\TRAMADOL
     Indication: PAIN
     Route: 048
     Dates: start: 20140721, end: 20141008
  4. MYSLEE [Suspect]
     Active Substance: ZOLPIDEM TARTRATE
     Indication: INSOMNIA
     Dosage: CUMULATIVE DOSE: 500 MG
     Route: 048
     Dates: start: 20140804, end: 20150108
  5. LYRICA [Suspect]
     Active Substance: PREGABALIN
     Indication: PAIN
     Route: 048
     Dates: start: 20140719, end: 20140904
  6. LYRICA [Suspect]
     Active Substance: PREGABALIN
     Indication: PAIN
     Route: 048
     Dates: start: 20140718, end: 20140718
  7. SHAKUYAKUKANZOTO [Concomitant]
     Active Substance: HERBALS
     Route: 065
     Dates: start: 20150219, end: 20150611
  8. TRAMCET [Suspect]
     Active Substance: ACETAMINOPHEN\TRAMADOL
     Indication: PAIN
     Route: 048
     Dates: start: 20141127, end: 20141211
  9. LOXONIN [Concomitant]
     Active Substance: LOXOPROFEN SODIUM
     Route: 065
     Dates: start: 20140707, end: 20140803
  10. TRAMCET [Suspect]
     Active Substance: ACETAMINOPHEN\TRAMADOL
     Indication: PAIN
     Route: 048
     Dates: start: 20141023, end: 20141126
  11. LYRICA [Suspect]
     Active Substance: PREGABALIN
     Indication: PAIN
     Route: 048
     Dates: start: 20141127
  12. JUZENTAIHOTO [Concomitant]
     Route: 065
  13. LIDOCAINE. [Concomitant]
     Active Substance: LIDOCAINE
     Route: 065
     Dates: start: 20140718, end: 20141225
  14. TRAMAL [Suspect]
     Active Substance: TRAMADOL
     Indication: WOUND COMPLICATION
     Route: 048
     Dates: start: 20141225, end: 20150121
  15. TRAMAL [Suspect]
     Active Substance: TRAMADOL
     Indication: WOUND COMPLICATION
     Route: 048
     Dates: start: 20140905, end: 20140924
  16. LYRICA [Suspect]
     Active Substance: PREGABALIN
     Indication: PAIN
     Route: 048
     Dates: start: 20140925, end: 20141019
  17. LENDORMIN [Concomitant]
     Active Substance: BROTIZOLAM
     Route: 065
     Dates: start: 20140629
  18. TRAMAL [Suspect]
     Active Substance: TRAMADOL
     Indication: WOUND COMPLICATION
     Route: 048
     Dates: start: 20141211, end: 20141224
  19. ACETAMINOPHEN. [Concomitant]
     Active Substance: ACETAMINOPHEN
     Indication: PRODUCT USED FOR UNKNOWN INDICATION
     Route: 065
  20. JUZENTAIHOTO [Concomitant]
     Route: 065
     Dates: start: 20141009, end: 20160621
  21. TRAMAL [Suspect]
     Active Substance: TRAMADOL
     Indication: WOUND COMPLICATION
     Route: 048
     Dates: start: 20140925, end: 20141009
  22. TRAMCET [Suspect]
     Active Substance: ACETAMINOPHEN\TRAMADOL
     Indication: PAIN
     Route: 048
     Dates: start: 20141009, end: 20141019
  23. PREGABALIN. [Concomitant]
     Active Substance: PREGABALIN
     Indication: PRODUCT USED FOR UNKNOWN INDICATION
     Route: 065
  24. LYRICA [Suspect]
     Active Substance: PREGABALIN
     Indication: PAIN
     Route: 048
     Dates: end: 20141225
  25. LYRICA [Suspect]
     Active Substance: PREGABALIN
     Indication: PAIN
     Route: 048
     Dates: start: 20140905, end: 20140924

REACTIONS (5)
  - Anaemia [Unknown]
  - White blood cell count decreased [Recovered/Resolved]
  - Pain [Unknown]
  - Insomnia [Unknown]
  - Platelet count decreased [Recovered/Resolved]

NARRATIVE: CASE EVENT DATE: 20140922
